FAERS Safety Report 8438649 (Version 2)
Quarter: 2013Q2

REPORT INFORMATION
  Report Type: Spontaneous
  Country: US (occurrence: US)
  Receive Date: 20120302
  Receipt Date: 20130425
  Transmission Date: 20140414
  Serious: No
  Sender: FDA-Public Use
  Company Number: US-AMGEN-USASP2011051824

PATIENT
  Sex: Female

DRUGS (6)
  1. NPLATE [Suspect]
     Indication: IDIOPATHIC THROMBOCYTOPENIC PURPURA
     Dosage: 75 MUG/KG, UNK
     Dates: start: 20101112, end: 20101209
  2. CORTICOSTEROIDS [Concomitant]
     Dosage: UNK
  3. PREDNISONE [Concomitant]
     Indication: IDIOPATHIC THROMBOCYTOPENIC PURPURA
     Dosage: 20 MG, QD
     Route: 048
     Dates: start: 20101209
  4. PREDNISONE [Concomitant]
     Dosage: 7.5 MG, UNK
     Dates: start: 20100609
  5. PREDNISONE [Concomitant]
     Dosage: 5 MG, QD
     Route: 048
  6. PREDNISONE [Concomitant]
     Dosage: 2.5 MG, QD

REACTIONS (1)
  - Platelet count decreased [Unknown]
